FAERS Safety Report 4954145-8 (Version None)
Quarter: 2006Q1

REPORT INFORMATION
  Report Type: 
  Country: None (occurrence: None)
  Receive Date: 20060327
  Receipt Date: 20051011
  Transmission Date: 20060701
  Serious: Yes (Hospitalization, Other)
  Sender: FDA-Public Use
  Company Number: PHNU2005DE03443

PATIENT
  Age: 16 Year
  Sex: Male
  Weight: 70 kg

DRUGS (3)
  1. VOLTAREN [Suspect]
     Indication: PAIN
     Dosage: 50/0/100MG/DAY
     Route: 048
     Dates: start: 20051010
  2. PANTOZOL [Suspect]
     Indication: PROPHYLAXIS
     Dosage: 14MG/DAY
     Dates: start: 20051010
  3. HEPARIN [Concomitant]

REACTIONS (8)
  - ANGINA PECTORIS [None]
  - DIZZINESS [None]
  - DYSKINESIA [None]
  - DYSPEPSIA [None]
  - HYPERHIDROSIS [None]
  - NAUSEA [None]
  - SOMNOLENCE [None]
  - VISUAL DISTURBANCE [None]
